FAERS Safety Report 19408531 (Version 1)
Quarter: 2021Q2

REPORT INFORMATION
  Report Type: Spontaneous
  Country: ES (occurrence: ES)
  Receive Date: 20210612
  Receipt Date: 20210612
  Transmission Date: 20210717
  Serious: Yes (Other)
  Sender: FDA-Public Use
  Company Number: ES-TEVA-2021-ES-1920554

PATIENT
  Age: 35 Year
  Sex: Female
  Weight: 89 kg

DRUGS (1)
  1. CETIRIZINA RATIOPHARM 10 MG COMPRIMIDOS RECUBIERTOS CON PELICULA EFG, [Suspect]
     Active Substance: CETIRIZINE HYDROCHLORIDE
     Indication: ARTHROPOD BITE
     Dosage: 2 DOSAGE FORMS DAILY; 1 PILL EVERY 12H
     Route: 048
     Dates: start: 20210525, end: 20210525

REACTIONS (3)
  - Psychomotor hyperactivity [Recovered/Resolved]
  - Burning sensation [Recovered/Resolved]
  - Erythema [Recovered/Resolved]

NARRATIVE: CASE EVENT DATE: 20210525
